FAERS Safety Report 6785703 (Version 3)
Quarter: 2015Q2

REPORT INFORMATION
  Report Type: Report from Study
  Country: DE (occurrence: DE)
  Receive Date: 20081013
  Receipt Date: 20150403
  Transmission Date: 20150821
  Serious: Yes (Hospitalization)
  Sender: FDA-Public Use
  Company Number: PHHO2008DE11882

PATIENT
  Age: 62 Year
  Sex: Male
  Weight: 74 kg

DRUGS (7)
  1. EVEROLIMUS [Suspect]
     Active Substance: EVEROLIMUS
     Indication: RENAL TRANSPLANT
     Dosage: 0.75 MG, BID
     Route: 048
     Dates: start: 20080401
  2. URBASON [Concomitant]
     Active Substance: METHYLPREDNISOLONE
     Dosage: 8 MG, QD
     Dates: start: 20080401
  3. MYFORTIC [Concomitant]
     Active Substance: MYCOPHENOLATE SODIUM
     Indication: RENAL TRANSPLANT
     Dosage: 720 MG, BID
     Route: 048
     Dates: start: 20080110
  4. SANDIMMUN OPTORAL [Suspect]
     Active Substance: CYCLOSPORINE
     Indication: RENAL TRANSPLANT
     Dosage: 275 MG, BID
     Route: 048
     Dates: start: 20080111
  5. SANDIMMUN OPTORAL [Suspect]
     Active Substance: CYCLOSPORINE
     Dosage: 50 MG, BID
     Dates: start: 20080402
  6. URBASON [Concomitant]
     Active Substance: METHYLPREDNISOLONE
     Indication: RENAL TRANSPLANT
     Dosage: 80 MG, QD
     Route: 048
     Dates: start: 20080111, end: 20080111
  7. URBASON [Concomitant]
     Active Substance: METHYLPREDNISOLONE
     Dosage: 60 MG, UNK
     Route: 048
     Dates: start: 20080112

REACTIONS (3)
  - Haematoma [Unknown]
  - Nephropathy toxic [Unknown]
  - Lymphocele [Unknown]

NARRATIVE: CASE EVENT DATE: 20080111
